FAERS Safety Report 11537519 (Version 7)
Quarter: 2018Q3

REPORT INFORMATION
  Report Type: Report from Study
  Country: US (occurrence: US)
  Receive Date: 20150922
  Receipt Date: 20180828
  Transmission Date: 20181010
  Serious: Yes (Other)
  Sender: FDA-Public Use
  Company Number: US-SA-2015SA052261

PATIENT
  Age: 45 Year
  Sex: Male

DRUGS (2)
  1. ALEMTUZUMAB [Suspect]
     Active Substance: ALEMTUZUMAB
     Indication: MULTIPLE SCLEROSIS
     Dosage: 12 MG,QD
     Route: 041
     Dates: start: 20150302, end: 20150306
  2. ALEMTUZUMAB [Suspect]
     Active Substance: ALEMTUZUMAB
     Dosage: 12 MG,QD
     Route: 041
     Dates: start: 20160326, end: 20160330

REACTIONS (8)
  - White blood cell count abnormal [Unknown]
  - Ill-defined disorder [Unknown]
  - Drug ineffective [Unknown]
  - Dysgraphia [Not Recovered/Not Resolved]
  - Gastroenteritis viral [Unknown]
  - Skin haemorrhage [Recovered/Resolved]
  - Immunodeficiency [Unknown]
  - Melanocytic naevus [Recovered/Resolved]

NARRATIVE: CASE EVENT DATE: 2015
